FAERS Safety Report 5898054-9 (Version None)
Quarter: 2008Q3

REPORT INFORMATION
  Report Type: 
  Country: None (occurrence: None)
  Receive Date: 20080904
  Receipt Date: 20080502
  Transmission Date: 20090109
  Serious: Yes (Other)
  Sender: FDA-Public Use
  Company Number: 200813456

PATIENT
  Age: 37 Year
  Sex: Female
  Weight: 58.9676 kg

DRUGS (4)
  1. CARIMUNE [Suspect]
     Indication: MULTIPLE SCLEROSIS
     Dosage: 40 G DAILY IV ; IV ; IV
     Route: 042
     Dates: start: 20080422, end: 20080423
  2. CARIMUNE [Suspect]
     Indication: MULTIPLE SCLEROSIS
     Dosage: 40 G DAILY IV ; IV ; IV
     Route: 042
     Dates: start: 20080422, end: 20080423
  3. CARIMUNE [Suspect]
     Indication: MULTIPLE SCLEROSIS
     Dosage: 40 G DAILY IV ; IV ; IV
     Route: 042
     Dates: start: 20080422, end: 20080423
  4. CARIMUNE [Suspect]

REACTIONS (4)
  - HEADACHE [None]
  - INFLUENZA LIKE ILLNESS [None]
  - PAIN [None]
  - PYREXIA [None]
